FAERS Safety Report 7042517-X (Version None)
Quarter: 2010Q4

REPORT INFORMATION
  Report Type: 
  Country: None (occurrence: None)
  Receive Date: 20101013
  Receipt Date: 20100610
  Transmission Date: 20110411
  Serious: No
  Sender: FDA-Public Use
  Company Number: US-ASTRAZENECA-2010SE19538

PATIENT
  Sex: Female

DRUGS (2)
  1. SYMBICORT [Suspect]
     Indication: ASTHMA
     Dosage: UNKNOWN DOSE
     Route: 055
  2. MIGRAINE THERAPY [Concomitant]

REACTIONS (7)
  - DRUG ADMINISTRATION ERROR [None]
  - DRUG DOSE OMISSION [None]
  - DYSPNOEA [None]
  - MIGRAINE [None]
  - PALPITATIONS [None]
  - VOMITING [None]
  - WHEEZING [None]
